FAERS Safety Report 12795241 (Version 1)
Quarter: 2016Q3

REPORT INFORMATION
  Report Type: Spontaneous
  Country: BR (occurrence: BR)
  Receive Date: 20160929
  Receipt Date: 20160929
  Transmission Date: 20161109
  Serious: Yes (Other)
  Sender: FDA-Public Use
  Company Number: BR-PFIZER INC-2016093926

PATIENT
  Age: 51 Year
  Sex: Female
  Weight: 73 kg

DRUGS (15)
  1. PREDNISONE. [Concomitant]
     Active Substance: PREDNISONE
     Dosage: 15 MG (3 TABLETS OF 5MG), DAILY
  2. ATENOLOL. [Concomitant]
     Active Substance: ATENOLOL
     Dosage: 25 MG, UNK
  3. ENBREL [Suspect]
     Active Substance: ETANERCEPT
     Indication: SJOGREN^S SYNDROME
     Dosage: 50 MG, 1X/WEEK
     Route: 058
     Dates: start: 20160304, end: 20160323
  4. FOLIC ACID. [Concomitant]
     Active Substance: FOLIC ACID
     Dosage: 5 MG, CYCLIC 3 TIMES PER WEEK
  5. ASPIRINA PREVENT [Concomitant]
     Active Substance: ASPIRIN
     Dosage: 200 MG (2 TABLETS OF 100 MG), DAILY
  6. OMEGA 3 [Concomitant]
     Active Substance: OMEGA-3 FATTY ACIDS
     Dosage: 6X/DAY
  7. ENBREL [Suspect]
     Active Substance: ETANERCEPT
     Indication: RHEUMATOID ARTHRITIS
     Dosage: 50 MG, 1X/WEEK
     Route: 058
     Dates: start: 201602, end: 201602
  8. ENBREL [Suspect]
     Active Substance: ETANERCEPT
     Dosage: UNK
  9. METHOTREXATE SODIUM. [Suspect]
     Active Substance: METHOTREXATE SODIUM
     Dosage: 0.8 ML, ONCE WEEKLY
     Dates: start: 20150830, end: 201602
  10. HYDROXYCHLOROQUINE [Concomitant]
     Active Substance: HYDROXYCHLOROQUINE
     Dosage: UNK
  11. MACRODANTIN [Concomitant]
     Active Substance: NITROFURANTOIN
     Dosage: 100 MG, DAILY
  12. CALCITRAN D3 [Concomitant]
     Dosage: UNK
  13. LOSARTAN. [Concomitant]
     Active Substance: LOSARTAN
     Dosage: 50 MG, UNK
  14. ENBREL [Suspect]
     Active Substance: ETANERCEPT
     Indication: FIBROMYALGIA
     Dosage: UNK
     Dates: start: 20160405, end: 20160607
  15. MACRODANTIN [Concomitant]
     Active Substance: NITROFURANTOIN
     Dosage: 100 MG, 2X/DAY

REACTIONS (32)
  - Urinary tract infection [Unknown]
  - Injection site discolouration [Not Recovered/Not Resolved]
  - Memory impairment [Not Recovered/Not Resolved]
  - Abdominal pain [Not Recovered/Not Resolved]
  - Ear infection [Unknown]
  - Asthenia [Not Recovered/Not Resolved]
  - Somnolence [Not Recovered/Not Resolved]
  - Pain in extremity [Not Recovered/Not Resolved]
  - Musculoskeletal chest pain [Unknown]
  - Pain [Unknown]
  - Arthralgia [Not Recovered/Not Resolved]
  - Weight decreased [Not Recovered/Not Resolved]
  - Malaise [Not Recovered/Not Resolved]
  - Feeling abnormal [Unknown]
  - Chest pain [Unknown]
  - Joint dislocation [Unknown]
  - Nausea [Not Recovered/Not Resolved]
  - Gallbladder disorder [Unknown]
  - Fall [Not Recovered/Not Resolved]
  - Bacterial infection [Unknown]
  - Decreased immune responsiveness [Unknown]
  - Pneumonia [Not Recovered/Not Resolved]
  - Abasia [Unknown]
  - Gait disturbance [Unknown]
  - Liver disorder [Unknown]
  - Urinary tract pain [Not Recovered/Not Resolved]
  - Dizziness [Not Recovered/Not Resolved]
  - Swelling [Unknown]
  - Depression [Not Recovered/Not Resolved]
  - Pyrexia [Unknown]
  - Activities of daily living impaired [Unknown]
  - Infection [Unknown]

NARRATIVE: CASE EVENT DATE: 201512
